FAERS Safety Report 10415436 (Version 2)
Quarter: 2014Q4

REPORT INFORMATION
  Report Type: Report from Study
  Country: US (occurrence: US)
  Receive Date: 20140828
  Receipt Date: 20141120
  Transmission Date: 20150528
  Serious: Yes (Other)
  Sender: FDA-Public Use
  Company Number: PHEH2014US016555

PATIENT
  Sex: Male
  Weight: 71.66 kg

DRUGS (2)
  1. GILENYA [Suspect]
     Active Substance: FINGOLIMOD HYDROCHLORIDE
     Indication: MULTIPLE SCLEROSIS
     Dosage: 0.5 MG, QD
     Route: 048
  2. VITAMIN D3 [Concomitant]
     Active Substance: CHOLECALCIFEROL

REACTIONS (7)
  - Fatigue [Unknown]
  - Hyperlipidaemia [Unknown]
  - Muscular weakness [Unknown]
  - Arnold-Chiari malformation [Unknown]
  - Central nervous system lesion [Unknown]
  - Asthenia [Unknown]
  - Vitamin D deficiency [Unknown]
